FAERS Safety Report 18867552 (Version 4)
Quarter: 2021Q2

REPORT INFORMATION
  Report Type: Spontaneous
  Country: US (occurrence: US)
  Receive Date: 20210209
  Receipt Date: 20210518
  Transmission Date: 20210717
  Serious: No
  Sender: FDA-Public Use
  Company Number: US-ASTRAZENECA-2021A023346

PATIENT
  Age: 985 Month
  Sex: Female
  Weight: 53.1 kg

DRUGS (2)
  1. PREDNISONE. [Concomitant]
     Active Substance: PREDNISONE
     Route: 065
     Dates: start: 20210111
  2. SYMBICORT [Suspect]
     Active Substance: BUDESONIDE\FORMOTEROL FUMARATE DIHYDRATE
     Indication: ASTHMA
     Dosage: 80?4.5 MCG TWO PUFFS TWICE A DAY
     Route: 055

REACTIONS (7)
  - Wheezing [Unknown]
  - Blood pressure increased [Unknown]
  - Product use issue [Unknown]
  - Drug delivery system malfunction [Unknown]
  - Device defective [Unknown]
  - Device dispensing error [Unknown]
  - Incorrect dose administered by device [Unknown]

NARRATIVE: CASE EVENT DATE: 202101
